FAERS Safety Report 26082862 (Version 1)
Quarter: 2025Q4

REPORT INFORMATION
  Report Type: Spontaneous
  Country: US (occurrence: US)
  Receive Date: 20251124
  Receipt Date: 20251124
  Transmission Date: 20260117
  Serious: Yes (Hospitalization, Other)
  Sender: NOVO NORDISK
  Company Number: US-NOVOPROD-1568658

PATIENT
  Sex: Female

DRUGS (1)
  1. OZEMPIC [Suspect]
     Active Substance: SEMAGLUTIDE
     Indication: Glucose tolerance impaired
     Dosage: 0.25 MG
     Dates: start: 2024, end: 202403

REACTIONS (9)
  - Haemorrhoids [Recovered/Resolved]
  - Polycystic ovarian syndrome [Unknown]
  - Irritable bowel syndrome [Unknown]
  - Weight increased [Unknown]
  - Blood disorder [Unknown]
  - Nausea [Unknown]
  - Decreased appetite [Recovered/Resolved]
  - Drug dose titration not performed [Recovered/Resolved]
  - Product use in unapproved indication [Recovered/Resolved]

NARRATIVE: CASE EVENT DATE: 20240301
